FAERS Safety Report 9232154 (Version 1)
Quarter: 2013Q2

REPORT INFORMATION
  Report Type: Report from Study
  Country: ZA (occurrence: ZA)
  Receive Date: 20130415
  Receipt Date: 20130415
  Transmission Date: 20140414
  Serious: Yes (Death)
  Sender: FDA-Public Use
  Company Number: ZA-ABBOTT-13P-143-1076472-00

PATIENT
  Sex: 0

DRUGS (2)
  1. RITONAVIR ORAL SOLUTION [Suspect]
     Indication: HIV INFECTION
     Route: 048
  2. FOSAMPRENAVIR [Suspect]
     Indication: HIV INFECTION

REACTIONS (1)
  - Death [Fatal]
